FAERS Safety Report 23677261 (Version 1)
Quarter: 2024Q1

REPORT INFORMATION
  Report Type: Spontaneous
  Country: US (occurrence: US)
  Receive Date: 20240327
  Receipt Date: 20240327
  Transmission Date: 20240410
  Serious: Yes (Other)
  Sender: FDA-Public Use
  Company Number: US-ABBVIE-5691406

PATIENT
  Age: 31 Year
  Sex: Female
  Weight: 82 kg

DRUGS (9)
  1. HUMIRA [Suspect]
     Active Substance: ADALIMUMAB
     Indication: Behcet^s syndrome
     Dosage: FORM STRENGTH: 40 MILLIGRAM
     Route: 058
     Dates: start: 20231031
  2. HUMIRA [Suspect]
     Active Substance: ADALIMUMAB
     Dosage: FORM STRENGTH: 40 MILLIGRAM
     Route: 058
     Dates: start: 202112, end: 202202
  3. VITAMINS [Concomitant]
     Active Substance: VITAMINS
     Indication: Arthralgia
  4. LOVENOX [Concomitant]
     Active Substance: ENOXAPARIN SODIUM
     Indication: Antiphospholipid syndrome
  5. INSULIN NOS [Concomitant]
     Active Substance: INSULIN NOS
     Indication: Glucose tolerance impaired
  6. ACYCLOVIR [Concomitant]
     Active Substance: ACYCLOVIR
     Indication: Herpes zoster
  7. PREDNISONE [Concomitant]
     Active Substance: PREDNISONE
     Indication: Behcet^s syndrome
     Dosage: FORM STRENGTH: 60 MILLIGRAM
  8. HEPARIN [Concomitant]
     Active Substance: HEPARIN SODIUM
     Indication: Antiphospholipid syndrome
  9. ADVIL [Concomitant]
     Active Substance: IBUPROFEN
     Indication: Product used for unknown indication

REACTIONS (12)
  - Sepsis [Recovered/Resolved]
  - Polyhydramnios [Recovered/Resolved]
  - Injection site discharge [Not Recovered/Not Resolved]
  - Herpes zoster [Recovered/Resolved]
  - Injection site urticaria [Recovered/Resolved]
  - Ischaemic hepatitis [Recovered/Resolved]
  - Live birth [Unknown]
  - Rash erythematous [Recovered/Resolved]
  - Wrong technique in product usage process [Not Recovered/Not Resolved]
  - Contusion [Recovered/Resolved]
  - Off label use [Unknown]
  - Maternal exposure during pregnancy [Unknown]

NARRATIVE: CASE EVENT DATE: 20220912
